FAERS Safety Report 9054041 (Version 1)
Quarter: 2013Q1

REPORT INFORMATION
  Report Type: Spontaneous
  Country: JP (occurrence: JP)
  Receive Date: 20130208
  Receipt Date: 20130208
  Transmission Date: 20140127
  Serious: Yes (Other)
  Sender: FDA-Public Use
  Company Number: JP-ASTELLAS-2013JP001333

PATIENT
  Age: 18 Year
  Sex: Male

DRUGS (2)
  1. PROGRAF [Suspect]
     Indication: ACUTE GRAFT VERSUS HOST DISEASE
     Dosage: UNK
     Route: 065
     Dates: start: 2010, end: 201101
  2. PREDONINE                          /00016201/ [Suspect]
     Indication: ACUTE GRAFT VERSUS HOST DISEASE
     Dosage: UNK
     Route: 065
     Dates: start: 2010, end: 201012

REACTIONS (1)
  - Porokeratosis [Unknown]
